FAERS Safety Report 18832904 (Version 2)
Quarter: 2021Q1

REPORT INFORMATION
  Report Type: Report from Study
  Country: None (occurrence: ES)
  Receive Date: 20210201
  Receipt Date: 20210209
  Transmission Date: 20210419
  Serious: Yes (Hospitalization)
  Sender: FDA-Public Use
  Company Number: ES-ABBVIE-21K-144-3753073-00

PATIENT
  Age: 83 Year
  Sex: Male
  Weight: 65 kg

DRUGS (2)
  1. DUODOPA [Suspect]
     Active Substance: CARBIDOPA\LEVODOPA
     Dosage: INCREASE THE CONTINUOUS DOSE 0.2 ML / H
     Route: 050
     Dates: start: 202101
  2. DUODOPA [Suspect]
     Active Substance: CARBIDOPA\LEVODOPA
     Indication: PARKINSON^S DISEASE
     Route: 050
     Dates: start: 20170406, end: 202101

REACTIONS (4)
  - Freezing phenomenon [Recovered/Resolved]
  - Malaise [Recovered/Resolved]
  - On and off phenomenon [Recovered/Resolved]
  - COVID-19 [Recovered/Resolved]

NARRATIVE: CASE EVENT DATE: 202101
